FAERS Safety Report 12306145 (Version 3)
Quarter: 2016Q2

REPORT INFORMATION
  Report Type: Spontaneous
  Country: US (occurrence: US)
  Receive Date: 20160426
  Receipt Date: 20160617
  Transmission Date: 20160815
  Serious: No
  Sender: FDA-Public Use
  Company Number: US-MDT-ADR-2016-00739

PATIENT
  Age: 58 Year
  Sex: Male

DRUGS (4)
  1. BACLOFEN. [Suspect]
     Active Substance: BACLOFEN
     Route: 048
     Dates: start: 20160407, end: 20160427
  2. BACLOFEN. [Suspect]
     Active Substance: BACLOFEN
     Dosage: ABOUT 200 MCG/DAY
     Route: 037
  3. BACLOFEN. [Suspect]
     Active Substance: BACLOFEN
     Dosage: 90 MCG TID IN FLEX DOSING WITH CONTINUOUS BASAL RATE OF 42
     Route: 037
     Dates: start: 20160407
  4. COMPOUNDED BACLOFEN [Suspect]
     Active Substance: BACLOFEN
     Dosage: 800 MCG/DAY
     Route: 037

REACTIONS (4)
  - Muscle tightness [Unknown]
  - Unevaluable event [Unknown]
  - Abasia [Unknown]
  - Muscle spasticity [Unknown]

NARRATIVE: CASE EVENT DATE: 201604
